FAERS Safety Report 9499179 (Version 3)
Quarter: 2013Q4

REPORT INFORMATION
  Report Type: Spontaneous
  Country: FR (occurrence: FR)
  Receive Date: 20130905
  Receipt Date: 20131119
  Transmission Date: 20140711
  Serious: Yes (Other)
  Sender: FDA-Public Use
  Company Number: FR-ROCHE-1269502

PATIENT
  Age: 64 Year
  Sex: Male

DRUGS (10)
  1. LUCENTIS [Suspect]
     Indication: DIABETIC RETINAL OEDEMA
     Route: 050
     Dates: start: 20121220
  2. LUCENTIS [Suspect]
     Route: 050
     Dates: start: 201308
  3. CRESTOR [Concomitant]
  4. AMLODIPINE [Concomitant]
  5. BISOPROLOL [Concomitant]
  6. PLAVIX [Concomitant]
  7. KARDEGIC [Concomitant]
  8. LASILIX [Concomitant]
  9. INSULIN [Concomitant]
  10. LANTUS [Concomitant]

REACTIONS (1)
  - Normochromic normocytic anaemia [Not Recovered/Not Resolved]
